FAERS Safety Report 6189388-1 (Version None)
Quarter: 2009Q2

REPORT INFORMATION
  Report Type: 
  Country: None (occurrence: None)
  Receive Date: 20090512
  Receipt Date: 20090428
  Transmission Date: 20091009
  Serious: Yes (Hospitalization)
  Sender: FDA-Public Use
  Company Number: 2009-195804-NL

PATIENT
  Age: 32 Year
  Sex: Female
  Weight: 81.6 kg

DRUGS (2)
  1. NUVARING [Suspect]
     Indication: MENSTRUATION IRREGULAR
     Dosage: ONCE A MONTH
     Dates: start: 20070501, end: 20070912
  2. NUVARING [Suspect]
     Indication: MUSCLE SPASMS
     Dosage: ONCE A MONTH
     Dates: start: 20070501, end: 20070912

REACTIONS (5)
  - FACTOR V LEIDEN MUTATION [None]
  - HEPATIC ENZYME INCREASED [None]
  - MUSCLE STRAIN [None]
  - PALPITATIONS [None]
  - PULMONARY EMBOLISM [None]
